FAERS Safety Report 9883147 (Version 2)
Quarter: 2014Q3

REPORT INFORMATION
  Report Type: Spontaneous
  Country: US (occurrence: US)
  Receive Date: 20140208
  Receipt Date: 20140818
  Transmission Date: 20150326
  Serious: Yes (Hospitalization, Other)
  Sender: FDA-Public Use
  Company Number: US-009507513-1402USA002842

PATIENT
  Sex: Female

DRUGS (3)
  1. NUVARING [Suspect]
     Active Substance: ETHINYL ESTRADIOL\ETONOGESTREL
     Dosage: INSERT 1 RING, LEAVE IN X3 WKS, REMOVE X1 WEEK
     Route: 067
     Dates: start: 20090715, end: 20091215
  2. NUVARING [Suspect]
     Active Substance: ETHINYL ESTRADIOL\ETONOGESTREL
     Indication: CONTRACEPTION
     Dosage: INSERT 1 RING, LEAVE IN X3 WKS, REMOVE X1 WEEK
     Route: 067
  3. WELLBUTRIN [Concomitant]
     Active Substance: BUPROPION HYDROCHLORIDE
     Indication: DEPRESSION

REACTIONS (8)
  - Paranasal sinus mucosal hypertrophy [Unknown]
  - Hip arthroplasty [Unknown]
  - Myomectomy [Unknown]
  - Cerebral infarction [Unknown]
  - Carotid artery thrombosis [Unknown]
  - Nasopharyngitis [Unknown]
  - Cerebral artery thrombosis [Unknown]
  - Thrombectomy [Unknown]

NARRATIVE: CASE EVENT DATE: 2005
